FAERS Safety Report 4403568-4 (Version None)
Quarter: 2004Q3

REPORT INFORMATION
  Report Type: 
  Country: None (occurrence: None)
  Receive Date: 20040721
  Receipt Date: 20040719
  Transmission Date: 20050211
  Serious: Yes (Other)
  Sender: FDA-Public Use
  Company Number: US-GLAXOSMITHKLINE-A0518812A

PATIENT
  Sex: Female

DRUGS (5)
  1. LAMICTAL [Suspect]
     Indication: BIPOLAR DISORDER
     Route: 048
     Dates: start: 20040617
  2. ABILIFY [Concomitant]
  3. PREVACID [Concomitant]
  4. NORVASC [Concomitant]
  5. GLUCOPHAGE [Concomitant]

REACTIONS (1)
  - FACIAL PALSY [None]
